FAERS Safety Report 9654686 (Version 1)
Quarter: 2013Q4

REPORT INFORMATION
  Report Type: Spontaneous
  Country: CA (occurrence: None)
  Receive Date: 20131028
  Receipt Date: 20131028
  Transmission Date: 20140711
  Serious: Yes (Death)
  Sender: FDA-Public Use
  Company Number: 2013CA0400

PATIENT
  Age: 68 Year
  Sex: Male

DRUGS (1)
  1. KINERET [Suspect]
     Dosage: 100 MG (100 MG, 1 IN 1 D) SUBCUTANEOUS
     Route: 058
     Dates: start: 20130911

REACTIONS (1)
  - Death [None]
